FAERS Safety Report 8016446-9 (Version None)
Quarter: 2011Q4

REPORT INFORMATION
  Report Type: 
  Country: None (occurrence: None)
  Receive Date: 20111230
  Receipt Date: 20111221
  Transmission Date: 20120403
  Serious: Yes (Hospitalization, Other)
  Sender: FDA-Public Use
  Company Number: US-ABBOTT-11P-163-0885384-00

PATIENT
  Sex: Male
  Weight: 122.58 kg

DRUGS (7)
  1. HUMIRA [Suspect]
     Route: 058
     Dates: start: 20111210
  2. HYDROCODONE BITARTRATE [Concomitant]
     Indication: RHEUMATOID ARTHRITIS
  3. HUMIRA [Suspect]
     Indication: RHEUMATOID ARTHRITIS
     Route: 058
     Dates: start: 20110325
  4. PREDNISONE TAB [Concomitant]
     Indication: RHEUMATOID ARTHRITIS
  5. LISINOPRIL [Concomitant]
     Indication: HYPERTENSION
  6. AMBIEN [Concomitant]
     Indication: SLEEP DISORDER
     Dosage: AT BEDTIME
  7. METOPROLOL [Concomitant]
     Indication: HYPERTENSION

REACTIONS (8)
  - DRUG DOSE OMISSION [None]
  - BONE DISORDER [None]
  - OSTEOMYELITIS [None]
  - FOOT DEFORMITY [None]
  - SEPSIS [None]
  - SKIN ULCER [None]
  - OEDEMA PERIPHERAL [None]
  - INFECTION [None]
